FAERS Safety Report 6531991-0 (Version None)
Quarter: 2009Q4

REPORT INFORMATION
  Report Type: 
  Country: None (occurrence: None)
  Receive Date: 20091223
  Receipt Date: 20081211
  Transmission Date: 20100525
  Serious: Yes (Other)
  Sender: FDA-Public Use
  Company Number: 2008156584

PATIENT
  Age: 54 Year
  Sex: Male

DRUGS (6)
  1. ATENOLOL [Suspect]
     Dosage: 50 MG, QHS, ORAL ; 100 MG, ORAL
     Route: 048
     Dates: start: 20080901, end: 20081101
  2. ATENOLOL [Suspect]
     Dosage: 50 MG, QHS, ORAL ; 100 MG, ORAL
     Route: 048
     Dates: start: 20081101
  3. OLMESARTAN MEDOXOMIL AND HYDROCHLOROTHIZIDE [Suspect]
     Indication: HYPERTENSION
     Dosage: 40/25 MG (QAM), ORAL
     Route: 048
     Dates: start: 20080801
  4. EFFEXOR [Concomitant]
  5. VICODIN [Concomitant]
  6. CARISOPRODOL [Concomitant]

REACTIONS (7)
  - ASTHENIA [None]
  - BLOOD CHOLESTEROL INCREASED [None]
  - BLOOD PRESSURE INCREASED [None]
  - DISORIENTATION [None]
  - HEADACHE [None]
  - MALAISE [None]
  - PAIN [None]
